FAERS Safety Report 4887512-1 (Version None)
Quarter: 2006Q1

REPORT INFORMATION
  Report Type: 
  Country: None (occurrence: None)
  Receive Date: 20060123
  Receipt Date: 20060117
  Transmission Date: 20060701
  Serious: Yes (Other)
  Sender: FDA-Public Use
  Company Number: NL-JNJFOC-20050704909

PATIENT
  Age: 43 Year
  Sex: Female

DRUGS (1)
  1. DUROGESIC MATRIX [Suspect]
     Indication: DRUG USE FOR UNKNOWN INDICATION
     Dosage: DUROGESIC 12 MATRIX PATCH
     Route: 062

REACTIONS (4)
  - BLINDNESS TRANSIENT [None]
  - INTRAOCULAR PRESSURE INCREASED [None]
  - MULTIPLE SCLEROSIS [None]
  - VISUAL DISTURBANCE [None]
